FAERS Safety Report 10664049 (Version 1)
Quarter: 2014Q4

REPORT INFORMATION
  Report Type: Spontaneous
  Country: US (occurrence: None)
  Receive Date: 20141217
  Receipt Date: 20141217
  Transmission Date: 20150529
  Serious: Yes (Other)
  Sender: FDA-Public Use
  Company Number: COL_18743_2014

PATIENT
  Sex: Male

DRUGS (1)
  1. COLGATE TOTAL FRESHMINT [Suspect]
     Active Substance: CETYLPYRIDINIUM CHLORIDE
     Indication: PRODUCT USED FOR UNKNOWN INDICATION
     Route: 048

REACTIONS (2)
  - Glossodynia [None]
  - Burns third degree [None]
